FAERS Safety Report 9870927 (Version 2)
Quarter: 2014Q1

REPORT INFORMATION
  Report Type: Spontaneous
  Country: FR (occurrence: FR)
  Receive Date: 20140205
  Receipt Date: 20140220
  Transmission Date: 20141002
  Serious: Yes (Hospitalization)
  Sender: FDA-Public Use
  Company Number: FR-PFIZER INC-2014030311

PATIENT
  Age: 43 Year
  Sex: Female

DRUGS (3)
  1. AROMASINE [Suspect]
     Indication: BREAST CANCER
     Dosage: 25 MG, UNK
     Route: 048
  2. HERCEPTIN [Suspect]
     Indication: BREAST CANCER
     Dosage: 150 MG, UNK
     Route: 042
     Dates: start: 199705
  3. NOLVADEX [Suspect]
     Indication: BREAST CANCER
     Dosage: UNK
     Route: 048

REACTIONS (2)
  - Second primary malignancy [Unknown]
  - Myelodysplastic syndrome [Unknown]
